FAERS Safety Report 9373170 (Version 1)
Quarter: 2013Q2

REPORT INFORMATION
  Report Type: Report from Study
  Country: US (occurrence: US)
  Receive Date: 20130627
  Receipt Date: 20130627
  Transmission Date: 20140414
  Serious: Yes (Other)
  Sender: FDA-Public Use
  Company Number: PHEH2012US025856

PATIENT
  Age: 56 Year
  Sex: Female
  Weight: 94.2 kg

DRUGS (22)
  1. GILENYA [Suspect]
     Indication: MULTIPLE SCLEROSIS
     Dosage: 0.5 MG, QD
     Route: 048
     Dates: start: 20120409, end: 20120411
  2. GILENYA [Suspect]
     Dosage: 0.5 MG, QD
     Route: 048
     Dates: start: 20120501
  3. ABILIFY [Concomitant]
     Dosage: 1 MG, Q96H
  4. ALPRAZOLAM [Concomitant]
  5. AMLODIPINE [Concomitant]
  6. ASPIRIN [Concomitant]
     Dosage: 81 MG, DAILY
  7. CALTRATE 600 + VITAMIN D [Concomitant]
  8. CARVEDILOL [Concomitant]
  9. CO Q-10 [Concomitant]
     Dosage: 100 MG, QD
  10. CYCLOBENZAPRINE [Concomitant]
  11. DERMA-SMOOTHE [Concomitant]
  12. DIVALPROEX [Concomitant]
     Dosage: 1 TAB, BID
     Route: 048
  13. EDECRIN [Concomitant]
  14. KETOCONAZOLE [Concomitant]
  15. LISINOPRIL [Concomitant]
  16. LORAZEPAM [Concomitant]
  17. MULTIVITAMINS [Concomitant]
  18. OXYCODONE [Concomitant]
  19. POTASSIUM [Concomitant]
     Dosage: 99 MEQ, DAILY
  20. PRAVASTATIN [Concomitant]
  21. VITAMIN D3 [Concomitant]
     Dosage: 4000 IU, DAILY
  22. LABETALOL [Concomitant]

REACTIONS (9)
  - Electrocardiogram ST segment elevation [Unknown]
  - Ischaemia [Unknown]
  - Heart rate decreased [Recovering/Resolving]
  - Palpitations [Recovered/Resolved]
  - Malaise [Unknown]
  - Atrioventricular block first degree [Unknown]
  - Cardiac flutter [Recovered/Resolved]
  - Feeling abnormal [Recovered/Resolved]
  - Blood pressure decreased [Recovered/Resolved]
